FAERS Safety Report 8462249-0 (Version None)
Quarter: 2012Q2

REPORT INFORMATION
  Report Type: 
  Country: None (occurrence: None)
  Receive Date: 20120618
  Receipt Date: 20120602
  Transmission Date: 20120825
  Serious: Yes (Other)
  Sender: FDA-Public Use
  Company Number: 2012AP001796

PATIENT
  Age: 51 Year
  Sex: Female

DRUGS (5)
  1. LAMOTRIGINE [Suspect]
     Indication: PRODUCT USED FOR UNKNOWN INDICATION
  2. ZOPICLONE (ZOPICLONE) [Suspect]
     Indication: PRODUCT USED FOR UNKNOWN INDICATION
  3. MIRTAZAPINE [Suspect]
     Indication: PRODUCT USED FOR UNKNOWN INDICATION
  4. ENALAPRIL MALEATE [Suspect]
     Indication: HYPERTENSION
  5. CLOZAPINE [Suspect]
     Indication: SCHIZOPHRENIA, PARANOID TYPE
     Dosage: 925 MG

REACTIONS (9)
  - WEIGHT DECREASED [None]
  - CONDITION AGGRAVATED [None]
  - DIZZINESS [None]
  - CATECHOLAMINES URINE INCREASED [None]
  - BLOOD CATECHOLAMINES INCREASED [None]
  - ANXIETY [None]
  - PSEUDOPHAEOCHROMOCYTOMA [None]
  - HYPERTENSIVE CRISIS [None]
  - TACHYCARDIA [None]
